FAERS Safety Report 7303905-7 (Version None)
Quarter: 2011Q1

REPORT INFORMATION
  Report Type: 
  Country: None (occurrence: None)
  Receive Date: 20110221
  Receipt Date: 20110215
  Transmission Date: 20110831
  Serious: Yes (Other)
  Sender: FDA-Public Use
  Company Number: B0701113A

PATIENT
  Age: 73 Year
  Sex: Female

DRUGS (5)
  1. SINEMET [Concomitant]
     Route: 048
     Dates: start: 20041022
  2. CALCIUM + COLECALCIFEROL [Concomitant]
     Route: 048
     Dates: start: 20031009
  3. AZILECT [Suspect]
     Indication: GAIT DISTURBANCE
     Dosage: 1MG PER DAY
     Route: 048
     Dates: start: 20090625
  4. REQUIP [Suspect]
     Dosage: 2MG PER DAY
     Route: 048
     Dates: start: 20090720
  5. ALENDRONIC ACID [Concomitant]
     Route: 048
     Dates: start: 20071029

REACTIONS (3)
  - ARTHRALGIA [None]
  - MYALGIA [None]
  - MUSCLE RUPTURE [None]
